FAERS Safety Report 21619559 (Version 1)
Quarter: 2022Q4

REPORT INFORMATION
  Report Type: Spontaneous
  Country: ES (occurrence: ES)
  Receive Date: 20221121
  Receipt Date: 20221121
  Transmission Date: 20230112
  Serious: Yes (Hospitalization, Other)
  Sender: FDA-Public Use
  Company Number: ES-LESVI-2022005250

PATIENT
  Age: 2 Month
  Sex: Female
  Weight: 3.82 kg

DRUGS (2)
  1. ACETAMINOPHEN [Suspect]
     Active Substance: ACETAMINOPHEN
     Indication: Irritability
     Dosage: UNK, (THERAPEUTIC DOSE)
     Route: 065
  2. ACETAMINOPHEN [Suspect]
     Active Substance: ACETAMINOPHEN
     Dosage: 12 DROPS OF THE SOLUTION, 100 MG/ML, 48 MG; 12.6 MG/KG
     Route: 065

REACTIONS (4)
  - Hepatic cytolysis [Recovered/Resolved]
  - Acute kidney injury [Recovered/Resolved]
  - Liver injury [Unknown]
  - Toxicity to various agents [Unknown]
